FAERS Safety Report 7485669-X (Version None)
Quarter: 2011Q2

REPORT INFORMATION
  Report Type: 
  Country: None (occurrence: None)
  Receive Date: 20110516
  Receipt Date: 20110516
  Transmission Date: 20111010
  Serious: No
  Sender: FDA-Public Use
  Company Number: None

PATIENT
  Sex: Female

DRUGS (1)
  1. SERTRALINE HYDROCHLORIDE [Suspect]
     Dosage: 1 1/2 QD ORAL  ESTIMATED AT 1-2 WKS
     Route: 048

REACTIONS (3)
  - DIARRHOEA [None]
  - PRODUCT SUBSTITUTION ISSUE [None]
  - VOMITING [None]
